FAERS Safety Report 21398440 (Version 2)
Quarter: 2022Q4

REPORT INFORMATION
  Report Type: Spontaneous
  Country: CA (occurrence: CA)
  Receive Date: 20220930
  Receipt Date: 20221028
  Transmission Date: 20230113
  Serious: Yes (Hospitalization)
  Sender: FDA-Public Use
  Company Number: CA-BIOMARINAP-CA-2022-145857

PATIENT

DRUGS (5)
  1. VIMIZIM [Suspect]
     Active Substance: ELOSULFASE ALFA
     Indication: Mucopolysaccharidosis IV
     Dosage: 2 MILLIGRAM/KILOGRAM, QW
     Route: 042
     Dates: start: 20210325
  2. EMLA [Concomitant]
     Active Substance: LIDOCAINE\PRILOCAINE
     Indication: Premedication
     Dosage: UNK, QW
     Route: 003
     Dates: start: 20210325
  3. IBUPROFEN [Concomitant]
     Active Substance: IBUPROFEN
     Indication: Premedication
     Dosage: 150 MILLIGRAM, QW
     Route: 048
     Dates: start: 20210325
  4. CETIRIZINE [Concomitant]
     Active Substance: CETIRIZINE HYDROCHLORIDE
     Indication: Premedication
     Dosage: 5 MILLIGRAM, QW
     Route: 048
     Dates: start: 20210325
  5. GRAVOL [Concomitant]
     Active Substance: DIMENHYDRINATE
     Indication: Premedication
     Dosage: 15 MILLIGRAM, QW
     Route: 048
     Dates: start: 20210325

REACTIONS (2)
  - Adenotonsillectomy [Unknown]
  - Pyrexia [Unknown]

NARRATIVE: CASE EVENT DATE: 20220922
